FAERS Safety Report 16087767 (Version 2)
Quarter: 2019Q2

REPORT INFORMATION
  Report Type: Spontaneous
  Country: ES (occurrence: ES)
  Receive Date: 20190319
  Receipt Date: 20190403
  Transmission Date: 20190711
  Serious: Yes (Life-Threatening, Hospitalization, Other)
  Sender: FDA-Public Use
  Company Number: ES-AUROBINDO-AUR-APL-2019-014304

PATIENT

DRUGS (1)
  1. MEROPENEM POWDER FOR SOLUTION FOR INFUSION [Suspect]
     Active Substance: MEROPENEM
     Indication: SEPSIS
     Dosage: 30MG/3ML
     Route: 042

REACTIONS (6)
  - Hypotension [Recovered/Resolved]
  - Generalised erythema [Recovered/Resolved]
  - Loss of consciousness [Recovered/Resolved]
  - Anaphylactic shock [Recovered/Resolved]
  - Drug hypersensitivity [Recovering/Resolving]
  - Cardio-respiratory arrest [Recovered/Resolved]

NARRATIVE: CASE EVENT DATE: 201710
